FAERS Safety Report 10128780 (Version 1)
Quarter: 2014Q2

REPORT INFORMATION
  Report Type: Spontaneous
  Country: US (occurrence: None)
  Receive Date: 20140425
  Receipt Date: 20140425
  Transmission Date: 20141212
  Serious: Yes (Disabling)
  Sender: FDA-Public Use
  Company Number: None

PATIENT
  Age: 86 Year
  Sex: Female
  Weight: 47.7 kg

DRUGS (1)
  1. BISOPROLOL FUMARATE [Suspect]
     Indication: HYPERTENSION
     Dosage: MARCH + APRIL

REACTIONS (9)
  - Quality of life decreased [None]
  - Heart rate decreased [None]
  - Fatigue [None]
  - Dizziness [None]
  - Decreased appetite [None]
  - Somnolence [None]
  - Activities of daily living impaired [None]
  - Gait disturbance [None]
  - Asthenia [None]
